FAERS Safety Report 15913734 (Version 2)
Quarter: 2019Q2

REPORT INFORMATION
  Report Type: Spontaneous
  Country: US (occurrence: US)
  Receive Date: 20190204
  Receipt Date: 20190625
  Transmission Date: 20190711
  Serious: Yes (Hospitalization, Other)
  Sender: FDA-Public Use
  Company Number: US-ABBVIE-18K-163-2426105-00

PATIENT
  Age: 76 Year
  Sex: Female
  Weight: 43.13 kg

DRUGS (7)
  1. ENBREL [Suspect]
     Active Substance: ETANERCEPT
     Route: 058
     Dates: start: 2018, end: 201806
  2. MTX [Suspect]
     Active Substance: METHOTREXATE SODIUM
     Indication: RHEUMATOID ARTHRITIS
     Route: 048
  3. DICLOFENAC SODIUM. [Suspect]
     Active Substance: DICLOFENAC SODIUM
     Indication: RHEUMATOID ARTHRITIS
     Route: 048
  4. HUMIRA [Suspect]
     Active Substance: ADALIMUMAB
     Indication: RHEUMATOID ARTHRITIS
     Route: 058
     Dates: end: 2017
  5. LEFLUNOMIDE. [Concomitant]
     Active Substance: LEFLUNOMIDE
     Indication: PRODUCT USED FOR UNKNOWN INDICATION
  6. ENBREL [Suspect]
     Active Substance: ETANERCEPT
     Indication: RHEUMATOID ARTHRITIS
     Route: 058
     Dates: start: 20180122, end: 2018
  7. XELJANZ XR [Suspect]
     Active Substance: TOFACITINIB CITRATE
     Indication: PRODUCT USED FOR UNKNOWN INDICATION
     Route: 048
     Dates: start: 2018

REACTIONS (24)
  - Hyperplasia [Not Recovered/Not Resolved]
  - Pruritus [Unknown]
  - Bronchitis [Recovered/Resolved]
  - Drug ineffective [Recovered/Resolved]
  - Rash pruritic [Recovering/Resolving]
  - Butterfly rash [Recovered/Resolved]
  - Breast calcifications [Recovering/Resolving]
  - Weight decreased [Not Recovered/Not Resolved]
  - Incorrect route of product administration [Unknown]
  - Rheumatoid arthritis [Unknown]
  - Lupus-like syndrome [Recovering/Resolving]
  - Skin exfoliation [Recovered/Resolved]
  - Arthralgia [Unknown]
  - Drug ineffective [Unknown]
  - Fatigue [Unknown]
  - Joint dislocation [Unknown]
  - Pruritus [Recovering/Resolving]
  - Alopecia [Not Recovered/Not Resolved]
  - Pelvic pain [Recovering/Resolving]
  - Headache [Unknown]
  - Joint lock [Unknown]
  - Tumour marker increased [Recovering/Resolving]
  - Paraesthesia [Unknown]
  - Therapeutic product effect incomplete [Recovering/Resolving]

NARRATIVE: CASE EVENT DATE: 2017
